FAERS Safety Report 4697301-9 (Version None)
Quarter: 2005Q2

REPORT INFORMATION
  Report Type: 
  Country: None (occurrence: None)
  Receive Date: 20050621
  Receipt Date: 20050621
  Transmission Date: 20051028
  Serious: Yes (Hospitalization)
  Sender: FDA-Public Use
  Company Number: None

PATIENT
  Age: 80 Year
  Sex: Male
  Weight: 88.905 kg

DRUGS (1)
  1. WARFARIN    4MG [Suspect]
     Indication: CORONARY ARTERY SURGERY
     Dosage: 4MG   DAILY   ORAL
     Route: 048
     Dates: start: 20050530, end: 20050620

REACTIONS (5)
  - ASTHENIA [None]
  - HAEMATOCHEZIA [None]
  - MELAENA [None]
  - THERAPEUTIC AGENT TOXICITY [None]
  - UNEVALUABLE EVENT [None]
